FAERS Safety Report 11402802 (Version 1)
Quarter: 2015Q3

REPORT INFORMATION
  Report Type: Spontaneous
  Country: US (occurrence: US)
  Receive Date: 20150821
  Receipt Date: 20150821
  Transmission Date: 20151125
  Serious: No
  Sender: FDA-Public Use
  Company Number: US-ROCHE-1294292

PATIENT
  Sex: Female

DRUGS (1)
  1. PEGASYS [Suspect]
     Active Substance: PEGINTERFERON ALFA-2A
     Indication: HEPATITIS C
     Dosage: 0.5ML SYRINGE.
     Route: 065
     Dates: start: 20130620

REACTIONS (3)
  - Eye irritation [Unknown]
  - Rash [Unknown]
  - Pruritus [Unknown]
